FAERS Safety Report 7804452-6 (Version None)
Quarter: 2011Q4

REPORT INFORMATION
  Report Type: 
  Country: None (occurrence: None)
  Receive Date: 20111010
  Receipt Date: 20101202
  Transmission Date: 20120403
  Serious: Yes (Hospitalization)
  Sender: FDA-Public Use
  Company Number: DE-CEPHALON-2010006162

PATIENT
  Sex: Female
  Weight: 90 kg

DRUGS (2)
  1. TRISENOX [Suspect]
     Route: 041
     Dates: start: 20100619, end: 20101108
  2. TRETINOIN [Suspect]
     Dates: start: 20100619, end: 20101108

REACTIONS (1)
  - PHARYNGITIS [None]
